FAERS Safety Report 5571184-7 (Version None)
Quarter: 2007Q4

REPORT INFORMATION
  Report Type: 
  Country: None (occurrence: None)
  Receive Date: 20071221
  Receipt Date: 20070103
  Transmission Date: 20080405
  Serious: No
  Sender: FDA-Public Use
  Company Number: A0633775A

PATIENT
  Sex: Male

DRUGS (1)
  1. FLONASE [Suspect]
     Indication: MULTIPLE ALLERGIES
     Dosage: 1SPR AS REQUIRED
     Route: 045

REACTIONS (9)
  - ANXIETY [None]
  - EPISTAXIS [None]
  - FEELING ABNORMAL [None]
  - FEELING COLD [None]
  - HOT FLUSH [None]
  - INFLUENZA [None]
  - INFLUENZA LIKE ILLNESS [None]
  - NAUSEA [None]
  - SINUS HEADACHE [None]
